FAERS Safety Report 14519690 (Version 1)
Quarter: 2018Q1

REPORT INFORMATION
  Report Type: Report from Study
  Country: US (occurrence: US)
  Receive Date: 20180212
  Receipt Date: 20180212
  Transmission Date: 20180509
  Serious: Yes (Hospitalization, Other)
  Sender: FDA-Public Use
  Company Number: US-AMAG PHARMACEUTICALS, INC.-AMAG201700868

PATIENT
  Age: 0 Day
  Sex: Male
  Weight: 2 kg

DRUGS (1)
  1. MAKENA [Suspect]
     Active Substance: HYDROXYPROGESTERONE CAPROATE
     Indication: EXPOSURE DURING PREGNANCY
     Dosage: UNK
     Route: 065
     Dates: start: 20161027, end: 20170302

REACTIONS (2)
  - Hypokinesia [Unknown]
  - Premature baby [Unknown]

NARRATIVE: CASE EVENT DATE: 20170303
